FAERS Safety Report 4737830-2 (Version None)
Quarter: 2005Q3

REPORT INFORMATION
  Report Type: 
  Country: None (occurrence: None)
  Receive Date: 20050802
  Receipt Date: 20050715
  Transmission Date: 20060218
  Serious: Yes (Hospitalization)
  Sender: FDA-Public Use
  Company Number: 216100

PATIENT
  Age: 38 Year
  Sex: Male

DRUGS (3)
  1. AVASTIN [Suspect]
     Indication: KAPOSI'S SARCOMA
     Dosage: 15 MG/KG, 2/MONTH'; INTRAVENOUS
     Route: 042
     Dates: start: 20030409
  2. BACTRIM DS (TRIMETHOPRIUM, SULFAMETHOXAZOLE) [Concomitant]
  3. COMBIVIR [Concomitant]

REACTIONS (14)
  - BLOOD AMYLASE INCREASED [None]
  - CELLULITIS [None]
  - DISEASE PROGRESSION [None]
  - DYSPNOEA [None]
  - HYPOPHOSPHATAEMIA [None]
  - KAPOSI'S SARCOMA [None]
  - LIPASE INCREASED [None]
  - PAIN [None]
  - PAIN IN EXTREMITY [None]
  - PROTEINURIA [None]
  - PULMONARY EMBOLISM [None]
  - PYREXIA [None]
  - THROMBOSIS [None]
  - WHITE BLOOD CELL COUNT INCREASED [None]
